FAERS Safety Report 12387668 (Version 1)
Quarter: 2016Q2

REPORT INFORMATION
  Report Type: Report from Study
  Country: US (occurrence: US)
  Receive Date: 20160520
  Receipt Date: 20160520
  Transmission Date: 20160815
  Serious: Yes (Hospitalization, Other)
  Sender: FDA-Public Use
  Company Number: US-ROCHE-1756592

PATIENT

DRUGS (1)
  1. VEMURAFENIB [Suspect]
     Active Substance: VEMURAFENIB
     Indication: METASTATIC MALIGNANT MELANOMA
     Route: 065

REACTIONS (8)
  - Delirium [Recovered/Resolved]
  - Sinus tachycardia [Recovered/Resolved]
  - Tumour pain [Recovered/Resolved]
  - Chest discomfort [Recovered/Resolved]
  - Abdominal pain [Recovered/Resolved]
  - Electrocardiogram QT prolonged [Recovered/Resolved]
  - Back pain [Recovered/Resolved]
  - Palpitations [Recovered/Resolved]

NARRATIVE: CASE EVENT DATE: 20150317
